FAERS Safety Report 7368485-9 (Version None)
Quarter: 2011Q1

REPORT INFORMATION
  Report Type: 
  Country: None (occurrence: None)
  Receive Date: 20110323
  Receipt Date: 20110315
  Transmission Date: 20110831
  Serious: Yes (Hospitalization, Other)
  Sender: FDA-Public Use
  Company Number: US-JNJFOC-20101001566

PATIENT
  Sex: Male

DRUGS (5)
  1. SIMVASTATIN [Concomitant]
     Indication: BLOOD CHOLESTEROL INCREASED
     Route: 065
  2. LEVAQUIN [Suspect]
     Indication: DIVERTICULITIS
     Route: 048
  3. GEMFIBROZIL [Concomitant]
     Indication: BLOOD CHOLESTEROL INCREASED
     Route: 065
  4. DIOVAN [Concomitant]
     Indication: HYPERTENSION
     Route: 065
  5. LEVAQUIN [Suspect]
     Route: 042

REACTIONS (4)
  - ANXIETY [None]
  - TENOSYNOVITIS [None]
  - ROTATOR CUFF SYNDROME [None]
  - TENDON RUPTURE [None]
